FAERS Safety Report 9460614 (Version 2)
Quarter: 2013Q3

REPORT INFORMATION
  Report Type: Report from Study
  Country: SE (occurrence: SE)
  Receive Date: 20130815
  Receipt Date: 20130830
  Transmission Date: 20140515
  Serious: Yes (Other)
  Sender: FDA-Public Use
  Company Number: SE-PFIZER INC-2013234667

PATIENT
  Age: 35 Year
  Sex: Female

DRUGS (2)
  1. SERTRALINE HCL [Suspect]
     Indication: DEPRESSION
     Dosage: 50 MG, DAILY
  2. SERTRALINE HCL [Suspect]
     Dosage: 25 MG, UNK

REACTIONS (10)
  - Drug withdrawal syndrome [Unknown]
  - Suicidal ideation [Unknown]
  - Depression [Unknown]
  - Anxiety [Unknown]
  - Panic attack [Unknown]
  - Fear [Unknown]
  - Stress [Unknown]
  - Dizziness [Unknown]
  - Feeling abnormal [Unknown]
  - Tinnitus [Unknown]
